FAERS Safety Report 12920740 (Version 3)
Quarter: 2016Q4

REPORT INFORMATION
  Report Type: Spontaneous
  Country: ZA (occurrence: ZA)
  Receive Date: 20161107
  Receipt Date: 20161128
  Transmission Date: 20170207
  Serious: Yes (Other)
  Sender: FDA-Public Use
  Company Number: ZA-JNJFOC-20161105216

PATIENT
  Age: 83 Year
  Sex: Male

DRUGS (3)
  1. XARELTO [Suspect]
     Active Substance: RIVAROXABAN
     Indication: PULMONARY EMBOLISM
     Route: 048
     Dates: end: 2015
  2. ATORVASTATIN [Concomitant]
     Active Substance: ATORVASTATIN
     Route: 065
  3. MICARDIS [Concomitant]
     Active Substance: TELMISARTAN
     Route: 065

REACTIONS (5)
  - Optic ischaemic neuropathy [Unknown]
  - Feeling hot [Unknown]
  - Pruritus [Unknown]
  - Cerebral infarction [Unknown]
  - Muscular weakness [Unknown]

NARRATIVE: CASE EVENT DATE: 201511
